FAERS Safety Report 7775308-2 (Version None)
Quarter: 2011Q3

REPORT INFORMATION
  Report Type: 
  Country: None (occurrence: None)
  Receive Date: 20110923
  Receipt Date: 20110919
  Transmission Date: 20111222
  Serious: Yes (Hospitalization)
  Sender: FDA-Public Use
  Company Number: DE-PFIZER INC-2011222330

PATIENT
  Age: 58 Year
  Sex: Female

DRUGS (2)
  1. IBUPROFEN [Suspect]
     Indication: PAIN
     Dosage: UNK
  2. FLUPIRTINE MALEATE [Suspect]
     Indication: PAIN

REACTIONS (2)
  - JAUNDICE [None]
  - HEPATITIS TOXIC [None]
